FAERS Safety Report 7883358-0 (Version None)
Quarter: 2011Q4

REPORT INFORMATION
  Report Type: 
  Country: None (occurrence: None)
  Receive Date: 20111102
  Receipt Date: 20111102
  Transmission Date: 20120403
  Serious: Yes (Other)
  Sender: FDA-Public Use
  Company Number: None

PATIENT
  Age: 15 Year
  Sex: Female
  Weight: 60.781 kg

DRUGS (1)
  1. MAGNEVIST [Suspect]
     Indication: NUCLEAR MAGNETIC RESONANCE IMAGING
     Dosage: 12 CC
     Dates: start: 20111012, end: 20111012

REACTIONS (10)
  - TINNITUS [None]
  - CONTRAST MEDIA REACTION [None]
  - INFLUENZA LIKE ILLNESS [None]
  - ANURIA [None]
  - HEADACHE [None]
  - PAIN [None]
  - SINUS HEADACHE [None]
  - FLANK PAIN [None]
  - MICTURITION URGENCY [None]
  - BLADDER DISORDER [None]
